FAERS Safety Report 8488167-X (Version None)
Quarter: 2012Q3

REPORT INFORMATION
  Report Type: 
  Country: None (occurrence: None)
  Receive Date: 20120705
  Receipt Date: 20120627
  Transmission Date: 20120928
  Serious: Yes (Other)
  Sender: FDA-Public Use
  Company Number: US-PFIZER INC-2012153931

PATIENT
  Sex: Female
  Weight: 54.2 kg

DRUGS (3)
  1. NERATINIB [Suspect]
     Indication: BREAST CANCER METASTATIC
     Dosage: 200 MG, 1X/DAY
     Route: 048
     Dates: start: 20120608, end: 20120620
  2. TRASTUZUMAB [Suspect]
     Indication: BREAST CANCER METASTATIC
     Dosage: 200/100 MG DAILY 1/8,15,24
     Route: 042
     Dates: start: 20120608, end: 20120615
  3. PACLITAXEL [Suspect]
     Indication: BREAST CANCER METASTATIC
     Dosage: 120 MG, DAY 1,8,15
     Route: 042
     Dates: start: 20120608, end: 20120615

REACTIONS (3)
  - MUCOSAL INFLAMMATION [None]
  - HYPOKALAEMIA [None]
  - DEHYDRATION [None]
